FAERS Safety Report 8394572-2 (Version None)
Quarter: 2012Q2

REPORT INFORMATION
  Report Type: 
  Country: None (occurrence: None)
  Receive Date: 20120530
  Receipt Date: 20120518
  Transmission Date: 20120825
  Serious: Yes (Other)
  Sender: FDA-Public Use
  Company Number: DE-ASTRAZENECA-2012SE32540

PATIENT

DRUGS (1)
  1. PROPOFOL [Suspect]
     Dosage: 6 ML, 10 MG/ML
     Route: 042

REACTIONS (1)
  - ACCIDENTAL EXPOSURE [None]
